FAERS Safety Report 5900462-4 (Version None)
Quarter: 2008Q3

REPORT INFORMATION
  Report Type: 
  Country: None (occurrence: None)
  Receive Date: 20080926
  Receipt Date: 20080924
  Transmission Date: 20090109
  Serious: Yes (Death)
  Sender: FDA-Public Use
  Company Number: GB-WYE-G02231108

PATIENT
  Age: 59 Year
  Sex: Female
  Weight: 130 kg

DRUGS (12)
  1. TAZOCIN [Suspect]
     Indication: ABDOMINAL SEPSIS
     Dates: start: 20080724, end: 20080811
  2. DEXAMETHASONE [Concomitant]
     Dosage: UNKNOWN
  3. FLOXACILLIN SODIUM [Concomitant]
     Dosage: UNKNOWN
  4. FRUSEMIDE [Concomitant]
     Dosage: UNKNOWN
  5. CHLORPHENIRAMINE MALEATE [Concomitant]
     Dosage: UNKNOWN
  6. HYDROCORTISONE [Concomitant]
     Dosage: UNKNOWN
  7. LANTUS [Concomitant]
     Dosage: UNKNOWN
  8. METRONIDAZOLE [Concomitant]
     Dosage: UNKNOWN
  9. OMEPRAZOLE [Concomitant]
     Dosage: UNKNOWN
  10. ACETAMINOPHEN [Concomitant]
     Dosage: UNKNOWN
  11. CEFUROXIME [Concomitant]
     Dosage: UNKNOWN
  12. GENTAMICIN [Concomitant]
     Dosage: UNKNOWN

REACTIONS (1)
  - EPIDERMAL NECROSIS [None]
